FAERS Safety Report 12045380 (Version 1)
Quarter: 2016Q1

REPORT INFORMATION
  Report Type: Spontaneous
  Country: US (occurrence: US)
  Receive Date: 20160208
  Receipt Date: 20160208
  Transmission Date: 20160526
  Serious: Yes (Hospitalization, Other)
  Sender: FDA-Public Use
  Company Number: US-ELI_LILLY_AND_COMPANY-US201602001429

PATIENT
  Age: 43 Year
  Sex: Female

DRUGS (1)
  1. FORTEO [Suspect]
     Active Substance: TERIPARATIDE
     Indication: OSTEOPENIA
     Dosage: 20 UG, QD
     Route: 065

REACTIONS (6)
  - Impaired healing [Recovered/Resolved]
  - Humerus fracture [Recovered/Resolved]
  - Off label use [Unknown]
  - Hypocalcaemia [Unknown]
  - Fall [Unknown]
  - Hypoalbuminaemia [Unknown]
